FAERS Safety Report 21354394 (Version 4)
Quarter: 2023Q4

REPORT INFORMATION
  Report Type: Spontaneous
  Country: US (occurrence: US)
  Receive Date: 20220920
  Receipt Date: 20231206
  Transmission Date: 20240110
  Serious: No
  Sender: FDA-Public Use
  Company Number: US-PFIZER INC-PV202200065980

PATIENT
  Age: 50 Year
  Sex: Female
  Weight: 87.528 kg

DRUGS (1)
  1. XELJANZ XR [Suspect]
     Active Substance: TOFACITINIB CITRATE
     Indication: Rheumatoid arthritis
     Dosage: 11 MG, 1X/DAY
     Route: 048
     Dates: start: 20220519, end: 20230630

REACTIONS (7)
  - COVID-19 [Recovered/Resolved]
  - Malaise [Unknown]
  - Condition aggravated [Unknown]
  - Abdominal discomfort [Unknown]
  - Nasopharyngitis [Recovered/Resolved]
  - Abdominal pain upper [Recovered/Resolved]
  - Abdominal pain upper [Recovered/Resolved]

NARRATIVE: CASE EVENT DATE: 20220701
